FAERS Safety Report 23806028 (Version 1)
Quarter: 2024Q2

REPORT INFORMATION
  Report Type: Spontaneous
  Country: US (occurrence: US)
  Receive Date: 20240502
  Receipt Date: 20240502
  Transmission Date: 20240716
  Serious: Yes (Other)
  Sender: FDA-Public Use
  Company Number: US-UCBSA-2023026896

PATIENT
  Age: 56 Year
  Sex: Female
  Weight: 76.19 kg

DRUGS (1)
  1. CIMZIA [Suspect]
     Active Substance: CERTOLIZUMAB PEGOL
     Indication: Psoriatic arthropathy
     Dosage: 400 MILLIGRAM, MONTHLY (QM)
     Route: 058
     Dates: start: 20221205

REACTIONS (2)
  - Psoriatic arthropathy [Unknown]
  - Illness [Unknown]

NARRATIVE: CASE EVENT DATE: 20230301
